FAERS Safety Report 19426198 (Version 1)
Quarter: 2021Q2

REPORT INFORMATION
  Report Type: Spontaneous
  Country: ES (occurrence: ES)
  Receive Date: 20210616
  Receipt Date: 20210616
  Transmission Date: 20210717
  Serious: Yes (Other)
  Sender: FDA-Public Use
  Company Number: ES-SA-2021SA193207

PATIENT
  Sex: Male
  Weight: 73 kg

DRUGS (1)
  1. LANTUS [Suspect]
     Active Substance: INSULIN GLARGINE
     Indication: TYPE 2 DIABETES MELLITUS
     Dosage: UNK
     Route: 058
     Dates: start: 2012, end: 20210326

REACTIONS (5)
  - Malignant melanoma [Not Recovered/Not Resolved]
  - Product storage error [Unknown]
  - Blindness unilateral [Unknown]
  - Blood iron decreased [Recovering/Resolving]
  - Malignant melanoma [Not Recovered/Not Resolved]

NARRATIVE: CASE EVENT DATE: 2019
